FAERS Safety Report 8816639 (Version 1)
Quarter: 2012Q4

REPORT INFORMATION
  Report Type: Spontaneous
  Country: DE (occurrence: None)
  Receive Date: 20120928
  Receipt Date: 20120928
  Transmission Date: 20130627
  Serious: Yes (Congenital Anomaly, Other)
  Sender: FDA-Public Use
  Company Number: GER/GER/12/0026015

PATIENT
  Sex: Male
  Weight: 2.25 kg

DRUGS (4)
  1. VENLAFAXINE [Suspect]
     Route: 064
     Dates: start: 20101022, end: 20110702
  2. VENLAFAXINE [Suspect]
     Dosage: FROM GW 6 UNTIL GW 28
     Route: 064
  3. TAVOR (LORAZEPAM) [Concomitant]
  4. FOLIO (FOLIO) [Concomitant]

REACTIONS (5)
  - Haemangioma congenital [None]
  - Low birth weight baby [None]
  - Breech presentation [None]
  - Caesarean section [None]
  - Maternal drugs affecting foetus [None]
